FAERS Safety Report 5043165-3 (Version None)
Quarter: 2006Q3

REPORT INFORMATION
  Report Type: 
  Country: None (occurrence: None)
  Receive Date: 20060703
  Receipt Date: 20060703
  Transmission Date: 20061208
  Serious: Yes (Hospitalization)
  Sender: FDA-Public Use
  Company Number: None

PATIENT
  Age: 44 Year
  Sex: Female
  Weight: 66.7 kg

DRUGS (2)
  1. FLUCONAZOLE [Suspect]
     Indication: OESOPHAGEAL CANDIDIASIS
     Dosage: 100 MG DAILY PO
     Route: 048
  2. TACROLIMUS [Suspect]
     Indication: TRANSPLANT REJECTION
     Dosage: 5 MG BID PO
     Route: 048

REACTIONS (3)
  - DRUG LEVEL INCREASED [None]
  - OESOPHAGEAL CANDIDIASIS [None]
  - RENAL FAILURE ACUTE [None]
